FAERS Safety Report 7306298-4 (Version None)
Quarter: 2011Q1

REPORT INFORMATION
  Report Type: 
  Country: None (occurrence: None)
  Receive Date: 20110222
  Receipt Date: 20110211
  Transmission Date: 20110831
  Serious: Yes (Other)
  Sender: FDA-Public Use
  Company Number: PHHY2011BE01183

PATIENT
  Age: 73 Year
  Sex: Female

DRUGS (2)
  1. FEMARA [Suspect]
     Dosage: 2.5 MG PER DAY
     Dates: start: 20100608
  2. EMCONCOR [Concomitant]

REACTIONS (5)
  - OCULAR HYPERAEMIA [None]
  - VISUAL ACUITY REDUCED [None]
  - EYE PAIN [None]
  - IRITIS [None]
  - UVEITIS [None]
